FAERS Safety Report 6210754-X (Version None)
Quarter: 2009Q2

REPORT INFORMATION
  Report Type: 
  Country: None (occurrence: None)
  Receive Date: 20090601
  Receipt Date: 20090518
  Transmission Date: 20091009
  Serious: Yes (Hospitalization, Other)
  Sender: FDA-Public Use
  Company Number: GB-MYLANLABS-2009S1003265

PATIENT
  Sex: Female

DRUGS (3)
  1. PHENYTOIN [Suspect]
     Indication: GRAND MAL CONVULSION
     Dosage: 600 MG/DAY
  2. VALPROIC ACID [Suspect]
     Indication: GRAND MAL CONVULSION
  3. CLONAZEPAM [Concomitant]
     Indication: GRAND MAL CONVULSION
     Dosage: 1 MG/DAY

REACTIONS (12)
  - DIPLOPIA [None]
  - DRUG INTERACTION [None]
  - DRUG LEVEL INCREASED [None]
  - DYSARTHRIA [None]
  - DYSPHAGIA [None]
  - GAIT DISTURBANCE [None]
  - HYPERREFLEXIA [None]
  - MUSCLE CONTRACTIONS INVOLUNTARY [None]
  - MUSCULAR WEAKNESS [None]
  - OPTIC NERVE DISORDER [None]
  - SEPSIS [None]
  - WEIGHT DECREASED [None]
